FAERS Safety Report 8778924 (Version 1)
Quarter: 2012Q4

REPORT INFORMATION
  Report Type: 
  Country: DE (occurrence: DE)
  Receive Date: 20120910
  Receipt Date: 20120910
  Transmission Date: 20130627
  Serious: Yes (Congenital Anomaly, Other)
  Sender: FDA-Public Use
  Company Number: DE-ELI_LILLY_AND_COMPANY-DE201209001111

PATIENT

DRUGS (2)
  1. FLUCTIN [Suspect]
     Indication: BORDERLINE PERSONALITY DISORDER
     Dosage: UNK, unknown
     Route: 064
     Dates: start: 20091113, end: 20100807
  2. FOLIO [Concomitant]
     Indication: PROPHYLAXIS
     Route: 064

REACTIONS (2)
  - Atrial septal defect [Unknown]
  - Foetal exposure during pregnancy [Recovered/Resolved]
